FAERS Safety Report 6026364-3 (Version None)
Quarter: 2009Q1

REPORT INFORMATION
  Report Type: 
  Country: None (occurrence: None)
  Receive Date: 20090102
  Receipt Date: 20081222
  Transmission Date: 20090719
  Serious: Yes (Hospitalization, Disabling, Other)
  Sender: FDA-Public Use
  Company Number: PHHY2008BR32900

PATIENT
  Sex: Male

DRUGS (3)
  1. DIOVAN HCT [Suspect]
     Indication: HYPERTENSION
     Dosage: 1 DF, QD
     Route: 048
  2. DIOVAN HCT [Suspect]
     Dosage: 2 DF, QD
     Route: 048
  3. VINPOCETINE [Concomitant]
     Indication: JUGULAR VEIN THROMBOSIS
     Dosage: 5 MG, QD
     Route: 048

REACTIONS (6)
  - BLOOD PRESSURE FLUCTUATION [None]
  - CEREBROVASCULAR ACCIDENT [None]
  - DYSPHAGIA [None]
  - PHYSIOTHERAPY [None]
  - SPEECH DISORDER [None]
  - WALKING DISABILITY [None]
